FAERS Safety Report 21177174 (Version 1)
Quarter: 2022Q3

REPORT INFORMATION
  Report Type: Spontaneous
  Country: US (occurrence: US)
  Receive Date: 20220805
  Receipt Date: 20220805
  Transmission Date: 20221027
  Serious: Yes (Other)
  Sender: FDA-Public Use
  Company Number: US-MYLANLABS-2022M1083777

PATIENT
  Age: 6 Decade
  Sex: Female

DRUGS (3)
  1. LIDOCAINE [Suspect]
     Active Substance: LIDOCAINE
     Indication: Coccydynia
     Dosage: UNK
     Route: 042
     Dates: start: 2011
  2. GABAPENTIN [Suspect]
     Active Substance: GABAPENTIN
     Indication: Coccydynia
     Dosage: 300 MILLIGRAM, QID
     Route: 065
  3. MEXILETINE [Suspect]
     Active Substance: MEXILETINE
     Indication: Coccydynia
     Dosage: 150 MILLIGRAM, TID
     Route: 065

REACTIONS (4)
  - Drug ineffective for unapproved indication [Unknown]
  - Somnolence [Unknown]
  - Weight increased [Unknown]
  - Off label use [Unknown]
